FAERS Safety Report 9787078 (Version 1)
Quarter: 2013Q4

REPORT INFORMATION
  Report Type: Spontaneous
  Country: US (occurrence: US)
  Receive Date: 20131228
  Receipt Date: 20131228
  Transmission Date: 20140711
  Serious: No
  Sender: FDA-Public Use
  Company Number: US-009507513-1312USA011407

PATIENT
  Sex: Female

DRUGS (2)
  1. NUVARING [Suspect]
     Dosage: UNK
     Route: 067
  2. NUVARING [Suspect]
     Dosage: UNK
     Route: 067

REACTIONS (3)
  - Menorrhagia [Unknown]
  - Menorrhagia [Unknown]
  - Inappropriate schedule of drug administration [Unknown]
